FAERS Safety Report 8921276 (Version 1)
Quarter: 2012Q4

REPORT INFORMATION
  Report Type: 
  Country: US (occurrence: US)
  Receive Date: 20121123
  Receipt Date: 20121123
  Transmission Date: 20130627
  Serious: No
  Sender: FDA-Public Use
  Company Number: US-BAYER-2012-121826

PATIENT
  Age: 80 Year
  Sex: Female
  Weight: 62.59 kg

DRUGS (5)
  1. ALEVE CAPLET/TABLET,MIDOL EXTENDED RELIEF CAPLET [Suspect]
     Indication: PAIN RELIEF
     Dosage: 1 DF, QD
     Route: 048
     Dates: start: 201211, end: 20121113
  2. EVISTA [RALOXIFENE HYDROCHLORIDE] [Concomitant]
  3. ZOCOR [Concomitant]
  4. CARDIZEM [Concomitant]
  5. MONOPRIL [Concomitant]

REACTIONS (2)
  - Oropharyngeal pain [Not Recovered/Not Resolved]
  - Nasopharyngitis [Not Recovered/Not Resolved]
